FAERS Safety Report 23618708 (Version 1)
Quarter: 2024Q1

REPORT INFORMATION
  Report Type: Report from Study
  Country: US (occurrence: US)
  Receive Date: 20240311
  Receipt Date: 20240311
  Transmission Date: 20240410
  Serious: Yes (Hospitalization, Other)
  Sender: FDA-Public Use
  Company Number: US-ABBVIE-5663129

PATIENT
  Age: 69 Year
  Sex: Male
  Weight: 68 kg

DRUGS (4)
  1. HUMIRA [Suspect]
     Active Substance: ADALIMUMAB
     Indication: Crohn^s disease
     Dosage: CITRATE FREE /FORM STRENGTH: 40MG
     Route: 058
     Dates: start: 202402, end: 202402
  2. HUMIRA [Suspect]
     Active Substance: ADALIMUMAB
     Dosage: SECOND DOSE/FORM STRENGTH: 40MG /CITRATE FREE
     Route: 058
     Dates: start: 20240222
  3. OMEPRAZOLE [Concomitant]
     Active Substance: OMEPRAZOLE
     Indication: Gastrooesophageal reflux disease
     Dosage: FORM STRENGTH: 20 MG
  4. LOSARTAN [Concomitant]
     Active Substance: LOSARTAN
     Indication: Product used for unknown indication

REACTIONS (3)
  - Small intestinal obstruction [Unknown]
  - Therapeutic product effect delayed [Recovered/Resolved]
  - Crohn^s disease [Unknown]

NARRATIVE: CASE EVENT DATE: 20240212
